FAERS Safety Report 9398609 (Version 1)
Quarter: 2013Q3

REPORT INFORMATION
  Report Type: Spontaneous
  Country: US (occurrence: US)
  Receive Date: 20130712
  Receipt Date: 20130712
  Transmission Date: 20140515
  Serious: No
  Sender: FDA-Public Use
  Company Number: US-UPSHER-SMITH LABORATORIES, INC.-13002392

PATIENT
  Age: 85 Year
  Sex: Female

DRUGS (5)
  1. FORTICAL [Suspect]
     Indication: OSTEOPOROSIS
     Dosage: 200 IU, QD
     Route: 045
     Dates: start: 20130710
  2. SYNTHROID [Concomitant]
     Dosage: UNK
  3. ARICEPT                            /01318901/ [Concomitant]
     Dosage: UNK
  4. MORPHINE [Concomitant]
     Indication: COMPRESSION FRACTURE
     Dosage: 15 MG, EVERY 12 HOURS
     Route: 048
     Dates: start: 20130709
  5. MOTRIN [Concomitant]
     Indication: COMPRESSION FRACTURE
     Dosage: 400 MG, BID
     Route: 048
     Dates: start: 20130710

REACTIONS (1)
  - Epistaxis [Recovered/Resolved]
